FAERS Safety Report 13611224 (Version 1)
Quarter: 2017Q2

REPORT INFORMATION
  Report Type: Spontaneous
  Country: US (occurrence: US)
  Receive Date: 20170604
  Receipt Date: 20170604
  Transmission Date: 20170830
  Serious: Yes (Life-Threatening)
  Sender: FDA-Public Use
  Company Number: None

PATIENT
  Age: 57 Year
  Sex: Female
  Weight: 99 kg

DRUGS (1)
  1. ESCITALOPRAM [Suspect]
     Active Substance: ESCITALOPRAM OXALATE
     Indication: MAJOR DEPRESSION
     Route: 048
     Dates: start: 20170511, end: 20170513

REACTIONS (5)
  - Anger [None]
  - Crying [None]
  - Depression [None]
  - Suicidal ideation [None]
  - Histrionic personality disorder [None]

NARRATIVE: CASE EVENT DATE: 20170513
